FAERS Safety Report 4774833-6 (Version None)
Quarter: 2005Q3

REPORT INFORMATION
  Report Type: 
  Country: None (occurrence: None)
  Receive Date: 20050921
  Receipt Date: 20050913
  Transmission Date: 20060218
  Serious: Yes (Other)
  Sender: FDA-Public Use
  Company Number: 200518100GDDC

PATIENT
  Age: 45 Year
  Sex: Female
  Weight: 52 kg

DRUGS (1)
  1. LEFLUNOMIDE [Suspect]
     Indication: RHEUMATOID ARTHRITIS
     Dosage: DOSE: UNK
     Dates: start: 20020401

REACTIONS (16)
  - ALOPECIA [None]
  - ASTHENIA [None]
  - BONE EROSION [None]
  - DERMATOMYOSITIS [None]
  - DRY MOUTH [None]
  - ELECTROMECHANICAL DISSOCIATION [None]
  - ERYTHEMA [None]
  - EYELID OEDEMA [None]
  - MUSCLE ATROPHY [None]
  - MUSCULAR WEAKNESS [None]
  - NORMOCHROMIC NORMOCYTIC ANAEMIA [None]
  - OSTEOPENIA [None]
  - POLYARTHRITIS [None]
  - RASH PAPULAR [None]
  - SWELLING [None]
  - WEIGHT DECREASED [None]
